FAERS Safety Report 18108920 (Version 7)
Quarter: 2022Q1

REPORT INFORMATION
  Report Type: Spontaneous
  Country: US (occurrence: US)
  Receive Date: 20200804
  Receipt Date: 20220127
  Transmission Date: 20220423
  Serious: No
  Sender: FDA-Public Use
  Company Number: US-PFIZER INC-2020291634

PATIENT
  Age: 68 Year
  Sex: Female

DRUGS (2)
  1. IBRANCE [Suspect]
     Active Substance: PALBOCICLIB
     Indication: Breast cancer female
     Dosage: 125 MG, CYCLIC (125 MG QD X 21 DAYS THEN 7 DAYS OFF)
     Dates: start: 20200610
  2. IBRANCE [Suspect]
     Active Substance: PALBOCICLIB
     Indication: Intervertebral disc disorder
     Dosage: 125 MG, CYCLIC (125 MG QD X 21 DAYS THEN 7 DAYS OFF)
     Dates: start: 20200611

REACTIONS (7)
  - White blood cell count decreased [Recovered/Resolved]
  - Stomatitis [Not Recovered/Not Resolved]
  - Rash [Unknown]
  - Full blood count abnormal [Unknown]
  - Fatigue [Unknown]
  - Product dose omission issue [Unknown]
  - Red blood cell count decreased [Unknown]

NARRATIVE: CASE EVENT DATE: 20200101
